FAERS Safety Report 12522836 (Version 2)
Quarter: 2016Q3

REPORT INFORMATION
  Report Type: Spontaneous
  Country: AR (occurrence: AR)
  Receive Date: 20160701
  Receipt Date: 20160907
  Transmission Date: 20161109
  Serious: Yes (Other)
  Sender: FDA-Public Use
  Company Number: PHHY2016AR090249

PATIENT
  Age: 84 Year
  Sex: Female

DRUGS (1)
  1. STARLIX [Suspect]
     Active Substance: NATEGLINIDE
     Indication: DIABETES MELLITUS
     Dosage: (1/2 OR 1/3) DF, QD
     Route: 065
     Dates: start: 2008

REACTIONS (4)
  - Thrombosis [Recovered/Resolved]
  - Gastritis [Recovering/Resolving]
  - Wrong technique in product usage process [Unknown]
  - Logorrhoea [Unknown]

NARRATIVE: CASE EVENT DATE: 201501
